FAERS Safety Report 11509628 (Version 1)
Quarter: 2015Q3

REPORT INFORMATION
  Report Type: Spontaneous
  Country: US (occurrence: US)
  Receive Date: 20150915
  Receipt Date: 20150915
  Transmission Date: 20151125
  Serious: No
  Sender: FDA-Public Use
  Company Number: US-JNJFOC-20150814188

PATIENT
  Age: 49 Year
  Sex: Male
  Weight: 72.58 kg

DRUGS (1)
  1. CHILDRENS TYLENOL [Suspect]
     Active Substance: ACETAMINOPHEN
     Indication: PRODUCT USED FOR UNKNOWN INDICATION
     Dosage: 1 TEASPOON AMOUNT
     Route: 048
     Dates: start: 20150819, end: 20150819

REACTIONS (3)
  - Wrong drug administered [Unknown]
  - Product taste abnormal [Unknown]
  - Intentional product misuse [Unknown]
